FAERS Safety Report 10267062 (Version 3)
Quarter: 2014Q3

REPORT INFORMATION
  Report Type: Spontaneous
  Country: IE (occurrence: IE)
  Receive Date: 20140630
  Receipt Date: 20140713
  Transmission Date: 20150326
  Serious: Yes (Death, Hospitalization, Other)
  Sender: FDA-Public Use
  Company Number: IE-AMGEN-IRLSP2014039557

PATIENT
  Age: 75 Year
  Sex: Female
  Weight: 69.98 kg

DRUGS (18)
  1. PROLIA [Suspect]
     Active Substance: DENOSUMAB
     Indication: OSTEOPOROSIS
     Dosage: 60 MG, Q6MO
     Route: 058
     Dates: start: 2012
  2. ARAVA [Concomitant]
     Active Substance: LEFLUNOMIDE
     Dosage: UNK
     Dates: start: 20120521
  3. IXPRIM [Concomitant]
     Active Substance: ACETAMINOPHEN\TRAMADOL HYDROCHLORIDE
     Dosage: 37.5 MG/325 MG
     Dates: start: 20120828
  4. AMITRIPTYLINE [Concomitant]
     Active Substance: AMITRIPTYLINE
     Dosage: 10 MG, UNK
     Route: 048
     Dates: start: 20140414
  5. ARCOXIA [Concomitant]
     Active Substance: ETORICOXIB
     Dosage: UNK
     Dates: start: 20120229
  6. DELTACORTRIL                       /00016201/ [Concomitant]
     Dosage: 5 MG, TID
     Route: 048
     Dates: start: 20131106
  7. ZYDOL                              /00599202/ [Concomitant]
     Dosage: 100 MG, BID
     Route: 048
     Dates: start: 20140306
  8. DALMANE [Concomitant]
     Active Substance: FLURAZEPAM HYDROCHLORIDE
     Dosage: 2 DF, QHS
     Route: 048
  9. EXFORGE [Concomitant]
     Active Substance: AMLODIPINE BESYLATE\VALSARTAN
     Dosage: UNK
     Dates: start: 20140414
  10. FRUSEMIDE                          /00032601/ [Concomitant]
     Active Substance: FUROSEMIDE
     Dosage: UNK
     Dates: start: 20120229
  11. CALCICHEW D3 FORTE [Concomitant]
     Active Substance: CALCIUM\CHOLECALCIFEROL
     Dosage: 500MG/400IU
     Route: 048
     Dates: start: 20140414
  12. BECONASE AQUEOUS NASAL SPRAY [Concomitant]
     Dosage: 200 UNIT, UNK
     Route: 045
     Dates: start: 20140414
  13. PARACETAMOL [Concomitant]
     Active Substance: ACETAMINOPHEN
     Dosage: 500 MG, FOUR TIMES DAILY
     Dates: start: 20140306
  14. DIAZEPAM. [Concomitant]
     Active Substance: DIAZEPAM
     Dosage: 2 MG, UNK
     Route: 048
     Dates: start: 20140414
  15. BUTRANS [Concomitant]
     Active Substance: BUPRENORPHINE
     Dosage: 10 MUG, PER HOUR
     Route: 062
     Dates: start: 20131109
  16. MIRAP [Concomitant]
     Dosage: UNK
     Dates: start: 20140414
  17. PREDNISOLONE. [Concomitant]
     Active Substance: PREDNISOLONE
     Dosage: UNK
     Dates: start: 20140414
  18. CIPROXIN                           /00697201/ [Concomitant]
     Dosage: 250 MG, UNK
     Route: 048
     Dates: start: 20140414

REACTIONS (4)
  - Death [Fatal]
  - Neutrophil count increased [Unknown]
  - Back pain [Unknown]
  - Metastatic gastric cancer [Unknown]

NARRATIVE: CASE EVENT DATE: 20140414
